FAERS Safety Report 5762400-7 (Version None)
Quarter: 2008Q2

REPORT INFORMATION
  Report Type: 
  Country: None (occurrence: None)
  Receive Date: 20080527
  Receipt Date: 20080124
  Transmission Date: 20081010
  Serious: Yes (Other)
  Sender: FDA-Public Use
  Company Number: 254502

PATIENT
  Age: 73 Year
  Sex: Female
  Weight: 83.9 kg

DRUGS (2)
  1. HERCEPTIN [Suspect]
     Indication: BREAST CANCER
     Dosage: 335 MG, INTRAVENOUS ; 165 MG, 1/WEEK, INTRAVENOUS
     Route: 042
     Dates: start: 20070725, end: 20070725
  2. TAXOL [Concomitant]

REACTIONS (3)
  - DYSPNOEA [None]
  - EJECTION FRACTION DECREASED [None]
  - OEDEMA PERIPHERAL [None]
